FAERS Safety Report 22536784 (Version 1)
Quarter: 2023Q2

REPORT INFORMATION
  Report Type: Spontaneous
  Country: CN (occurrence: CN)
  Receive Date: 20230608
  Receipt Date: 20230608
  Transmission Date: 20230722
  Serious: Yes (Other)
  Sender: FDA-Public Use
  Company Number: CN-Merck Healthcare KGaA-9405130

PATIENT
  Age: 74 Year
  Sex: Male
  Weight: 50 kg

DRUGS (2)
  1. ERBITUX [Suspect]
     Active Substance: CETUXIMAB
     Indication: Oropharyngeal squamous cell carcinoma
     Dosage: 560 MG, DAILY
     Route: 041
     Dates: start: 20230524, end: 20230524
  2. SODIUM CHLORIDE [Concomitant]
     Active Substance: SODIUM CHLORIDE
     Indication: Medication dilution
     Dosage: 500 MG, DAILY
     Route: 041
     Dates: start: 20230524, end: 20230524

REACTIONS (10)
  - Palpitations [Recovering/Resolving]
  - Back pain [Recovering/Resolving]
  - Restlessness [Recovering/Resolving]
  - Hyperhidrosis [Recovering/Resolving]
  - Chest discomfort [Recovering/Resolving]
  - Heart rate increased [Recovering/Resolving]
  - Blood pressure decreased [Recovering/Resolving]
  - Flushing [Recovering/Resolving]
  - Rash [Recovering/Resolving]
  - Pruritus [Recovering/Resolving]

NARRATIVE: CASE EVENT DATE: 20230524
